FAERS Safety Report 20677279 (Version 1)
Quarter: 2022Q2

REPORT INFORMATION
  Report Type: Spontaneous
  Country: US (occurrence: US)
  Receive Date: 20220406
  Receipt Date: 20220406
  Transmission Date: 20220721
  Serious: No
  Sender: FDA-Public Use
  Company Number: US-GILEAD-2022-0576140

PATIENT
  Sex: Male

DRUGS (7)
  1. EPCLUSA [Suspect]
     Active Substance: SOFOSBUVIR\VELPATASVIR
     Indication: Chronic hepatitis C
     Dosage: 1 DOSAGE FORM (100-400MG), QD
     Route: 048
  2. CONSTULOSE [Concomitant]
     Active Substance: LACTULOSE
  3. TAMSULOSIN HYDROCHLORIDE [Concomitant]
     Active Substance: TAMSULOSIN HYDROCHLORIDE
  4. SPIRONOLACTONE [Concomitant]
     Active Substance: SPIRONOLACTONE
  5. NADOLOL [Concomitant]
     Active Substance: NADOLOL
  6. ONDANSETRON [Concomitant]
     Active Substance: ONDANSETRON
  7. RIBAVIRIN [Concomitant]
     Active Substance: RIBAVIRIN

REACTIONS (5)
  - Asthenia [Unknown]
  - Fatigue [Unknown]
  - Arthropathy [Unknown]
  - Vomiting [Unknown]
  - Dizziness [Unknown]
